FAERS Safety Report 9538766 (Version 1)
Quarter: 2013Q2

REPORT INFORMATION
  Report Type: Spontaneous
  Country: US (occurrence: None)
  Receive Date: 20130517
  Receipt Date: 20130517
  Transmission Date: 20140414
  Serious: No
  Sender: FDA-Public Use
  Company Number: 2012PL000086

PATIENT
  Age: 45 Year
  Sex: Female
  Weight: 117.94 kg

DRUGS (2)
  1. IMURAN (AZATHIOPRINE) [Suspect]
     Indication: CROHN^S DISEASE
     Dates: start: 200903, end: 201011
  2. HUMIRA [Suspect]
     Indication: CROHN^S DISEASE
     Dates: start: 200903

REACTIONS (2)
  - Histoplasmosis disseminated [None]
  - Crohn^s disease [None]
